FAERS Safety Report 25132989 (Version 1)
Quarter: 2025Q1

REPORT INFORMATION
  Report Type: Spontaneous
  Country: US (occurrence: US)
  Receive Date: 20250328
  Receipt Date: 20250328
  Transmission Date: 20250409
  Serious: Yes (Hospitalization)
  Sender: INDOCO REMEDIES LIMITED
  Company Number: US-MLMSERVICE-20250317-PI446056-00149-1

PATIENT
  Age: 77 Year
  Sex: Male

DRUGS (4)
  1. LACOSAMIDE [Suspect]
     Active Substance: LACOSAMIDE
     Indication: Seizure
     Route: 065
  2. FLECAINIDE [Suspect]
     Active Substance: FLECAINIDE
     Indication: Atrial fibrillation
     Route: 065
  3. TESSALON [Suspect]
     Active Substance: BENZONATATE
     Indication: Cough
     Route: 065
  4. APIXABAN [Concomitant]
     Active Substance: APIXABAN
     Indication: Atrial fibrillation
     Route: 065

REACTIONS (5)
  - Bundle branch block right [Recovered/Resolved]
  - Electrocardiogram QT prolonged [Recovered/Resolved]
  - Drug interaction [Unknown]
  - Sinus bradycardia [Recovered/Resolved]
  - Atrioventricular block first degree [Recovered/Resolved]
